FAERS Safety Report 7583910-6 (Version None)
Quarter: 2011Q2

REPORT INFORMATION
  Report Type: 
  Country: None (occurrence: None)
  Receive Date: 20110531
  Receipt Date: 20101118
  Transmission Date: 20111010
  Serious: Yes (Other)
  Sender: FDA-Public Use
  Company Number: 318759

PATIENT
  Age: 64 Year
  Sex: Female
  Weight: 71.7 kg

DRUGS (13)
  1. PROVERA [Suspect]
     Indication: MENOPAUSE
     Dosage: 5 MG, ORAL ; 10 MG
     Route: 048
     Dates: start: 19930420, end: 19990201
  2. ESTRATEST H.S. [Suspect]
     Indication: MENOPAUSE
     Dosage: 1.25/2.25 MG
     Route: 048
     Dates: start: 19940606, end: 20070101
  3. VENLAFAXINE [Concomitant]
  4. ZANAFLEX [Concomitant]
  5. VAGIFEM [Suspect]
     Indication: MENOPAUSE
     Dosage: 25 UG, VAGINAL
     Route: 067
     Dates: start: 20040818, end: 20041221
  6. MEDROXYPROGESTERONE ACETATE [Suspect]
     Indication: MENOPAUSE
     Dosage: 5 MG ; 10 MG
     Dates: start: 19990201, end: 20071001
  7. CLIMARA PRO [Suspect]
     Indication: MENOPAUSE
     Dosage: 0.045/.015
     Dates: start: 20041021, end: 20050518
  8. PREVACID [Concomitant]
  9. TESTOSTERONE [Suspect]
     Indication: MENOPAUSE
     Dates: end: 19981209
  10. PREMARIN [Suspect]
     Indication: MENOPAUSE
     Dosage: 0.9 MG, ORAL
     Route: 048
     Dates: start: 19930420, end: 19981222
  11. ULTRAM [Concomitant]
  12. SINGULAIR [Concomitant]
  13. DOXEPIN HCL [Concomitant]

REACTIONS (1)
  - BREAST CANCER [None]
